FAERS Safety Report 8269658-3 (Version None)
Quarter: 2012Q2

REPORT INFORMATION
  Report Type: 
  Country: None (occurrence: None)
  Receive Date: 20120410
  Receipt Date: 20120329
  Transmission Date: 20120825
  Serious: Yes (Other)
  Sender: FDA-Public Use
  Company Number: AR-AMGEN-ARGSP2012014761

PATIENT
  Age: 56 Year
  Sex: Female

DRUGS (2)
  1. ENBREL [Suspect]
     Indication: RHEUMATOID ARTHRITIS
     Dosage: 50 MG, WEEKLY
     Route: 058
     Dates: start: 20111017, end: 20111101
  2. LOSARTAN POTASSIUM [Concomitant]
     Dosage: UNK

REACTIONS (4)
  - HYPERTENSIVE CRISIS [None]
  - VERTIGO [None]
  - WEIGHT DECREASED [None]
  - PNEUMONIA [None]
